FAERS Safety Report 5634491-5 (Version None)
Quarter: 2008Q1

REPORT INFORMATION
  Report Type: 
  Country: None (occurrence: None)
  Receive Date: 20080222
  Receipt Date: 20080212
  Transmission Date: 20080703
  Serious: Yes (Hospitalization)
  Sender: FDA-Public Use
  Company Number: US-BAYER-200810073NA

PATIENT
  Age: 91 Year
  Sex: Male
  Weight: 66 kg

DRUGS (13)
  1. AVELOX [Suspect]
     Indication: LOBAR PNEUMONIA
     Route: 042
     Dates: start: 20071121, end: 20071123
  2. AVELOX [Suspect]
     Indication: LOBAR PNEUMONIA
     Dosage: TOTAL DAILY DOSE: 400 MG  UNIT DOSE: 400 MG
     Route: 048
     Dates: start: 20071124, end: 20071202
  3. INTRAVENOUS FLUIDS [Concomitant]
  4. OXYGEN [Concomitant]
  5. VASOTEC [Concomitant]
  6. NORVASC [Concomitant]
  7. LOPRESSOR [Concomitant]
  8. TAPAZOLE [Concomitant]
  9. HYDERGINE [Concomitant]
  10. GRAPE SEED OIL [Concomitant]
  11. MULTI-VITAMIN [Concomitant]
  12. DARVOCET [Concomitant]
  13. TRAMADOL HCL [Concomitant]

REACTIONS (11)
  - AGEUSIA [None]
  - BLISTER [None]
  - CARDIAC FAILURE CONGESTIVE [None]
  - DRY MOUTH [None]
  - DYSPHAGIA [None]
  - DYSPNOEA [None]
  - GENERALISED OEDEMA [None]
  - JOINT SWELLING [None]
  - OEDEMA PERIPHERAL [None]
  - PENILE OEDEMA [None]
  - PLEURAL EFFUSION [None]
